FAERS Safety Report 8453853-4 (Version None)
Quarter: 2012Q2

REPORT INFORMATION
  Report Type: 
  Country: None (occurrence: None)
  Receive Date: 20120323
  Receipt Date: 20111129
  Transmission Date: 20120825
  Serious: Yes (Other)
  Sender: FDA-Public Use
  Company Number: 163-21880-11110240

PATIENT
  Age: 57 Year
  Sex: Male
  Weight: 117.9352 kg

DRUGS (11)
  1. REVLIMID [Suspect]
     Indication: MULTIPLE MYELOMA
     Dosage: 25 MG, DAILY X 21 DAYS, PO
     Route: 048
     Dates: start: 20080401
  2. HYDROCODRONE (HYDROCODONE) [Concomitant]
  3. LISINOPRIL [Concomitant]
  4. LOVAZA [Concomitant]
  5. HYOSCYAMINE (HYOSCYAMINE) [Concomitant]
  6. FUROSEMIDE [Concomitant]
  7. LIPITOR [Concomitant]
  8. MULTI-VITAMIN [Concomitant]
  9. ACETAMINOPHEN [Concomitant]
  10. ALLOPURINOL [Concomitant]
  11. MAGNESIUM OXIDE (MAGNESIUM OXIDE) [Concomitant]

REACTIONS (1)
  - CEREBROVASCULAR ACCIDENT [None]
